FAERS Safety Report 16300233 (Version 1)
Quarter: 2019Q2

REPORT INFORMATION
  Report Type: Spontaneous
  Country: US (occurrence: US)
  Receive Date: 20190510
  Receipt Date: 20190510
  Transmission Date: 20190711
  Serious: Yes (Hospitalization, Other)
  Sender: FDA-Public Use
  Company Number: US-BAYER-2019-088271

PATIENT
  Age: 35 Year
  Sex: Female

DRUGS (1)
  1. SKYLA [Suspect]
     Active Substance: LEVONORGESTREL
     Indication: CONTRACEPTION
     Dosage: 14 MCG/24HR, CONT
     Dates: start: 20151117

REACTIONS (4)
  - Ectopic pregnancy with contraceptive device [None]
  - Device dislocation [Not Recovered/Not Resolved]
  - Abortion of ectopic pregnancy [None]
  - Device use issue [None]

NARRATIVE: CASE EVENT DATE: 20190430
